FAERS Safety Report 5874859-5 (Version None)
Quarter: 2008Q3

REPORT INFORMATION
  Report Type: 
  Country: None (occurrence: None)
  Receive Date: 20080904
  Receipt Date: 20080821
  Transmission Date: 20090109
  Serious: Yes (Other)
  Sender: FDA-Public Use
  Company Number: 1000000712

PATIENT
  Age: 38 Year
  Sex: Male
  Weight: 73.5 kg

DRUGS (3)
  1. ESCITALOPRAM [Suspect]
     Indication: DEPRESSION
     Dosage: 5 MG (5 MG,1 IN 1 D), ORAL; 10 MG (10 MG,1 IN 1 D), ORAL
     Route: 048
     Dates: start: 20080804, end: 20080810
  2. ESCITALOPRAM [Suspect]
     Indication: DEPRESSION
     Dosage: 5 MG (5 MG,1 IN 1 D), ORAL; 10 MG (10 MG,1 IN 1 D), ORAL
     Route: 048
     Dates: start: 20080811
  3. MULTIVITAMIN NOS [Concomitant]

REACTIONS (8)
  - AMNESIA [None]
  - ANXIETY [None]
  - DECREASED APPETITE [None]
  - DEPRESSION [None]
  - INSOMNIA [None]
  - NAUSEA [None]
  - SEXUAL DYSFUNCTION [None]
  - SUICIDAL IDEATION [None]
